FAERS Safety Report 20730612 (Version 1)
Quarter: 2022Q2

REPORT INFORMATION
  Report Type: Report from Study
  Country: JP (occurrence: JP)
  Receive Date: 20220420
  Receipt Date: 20220420
  Transmission Date: 20220721
  Serious: Yes (Hospitalization)
  Sender: FDA-Public Use
  Company Number: JP-MYLANLABS-2022M1028091

PATIENT
  Age: 78 Year
  Sex: Female

DRUGS (5)
  1. CYCLOSPORINE [Suspect]
     Active Substance: CYCLOSPORINE
     Indication: Ulcerative keratitis
     Route: 048
     Dates: start: 2016
  2. CYCLOSPORINE [Suspect]
     Active Substance: CYCLOSPORINE
     Indication: Immunosuppressant drug therapy
  3. TACROLIMUS [Suspect]
     Active Substance: TACROLIMUS
     Indication: Ulcerative keratitis
     Dosage: 0.1 PERCENT, QID
     Route: 061
     Dates: start: 2016
  4. TACROLIMUS [Suspect]
     Active Substance: TACROLIMUS
     Indication: Immunosuppressant drug therapy
  5. BETAMETHASONE [Suspect]
     Active Substance: BETAMETHASONE
     Indication: Ulcerative keratitis
     Dosage: 0.1 PERCENT, QID
     Route: 061
     Dates: start: 2016

REACTIONS (5)
  - Corneal endotheliitis [Recovering/Resolving]
  - Cytomegalovirus infection [Recovering/Resolving]
  - Mydriasis [Unknown]
  - Cataract [Unknown]
  - Visual field defect [Unknown]

NARRATIVE: CASE EVENT DATE: 20190601
